FAERS Safety Report 10057824 (Version 2)
Quarter: 2014Q2

REPORT INFORMATION
  Report Type: Report from Study
  Country: JP (occurrence: JP)
  Receive Date: 20140404
  Receipt Date: 20140411
  Transmission Date: 20141212
  Serious: Yes (Hospitalization)
  Sender: FDA-Public Use
  Company Number: JP-SHIRE-JP201400822

PATIENT
  Age: 16 Year
  Sex: Male
  Weight: 51.2 kg

DRUGS (13)
  1. VELAGLUCERASE ALFA [Suspect]
     Indication: GAUCHER^S DISEASE
     Dosage: 2828 IU, 1X/2WKS (8 VIALS)
     Route: 041
     Dates: start: 20130607
  2. VELAGLUCERASE ALFA [Suspect]
     Dosage: 2800 IU, 1X/2WKS (7 VIALS)
     Route: 041
     Dates: start: 20120609, end: 20130525
  3. NADIFLOXACIN [Concomitant]
     Indication: ACNE
     Dosage: UNK
     Route: 062
     Dates: start: 201107
  4. ASCORBIC ACID [Concomitant]
     Indication: SUPPLEMENTATION THERAPY
     Dosage: UNK
     Route: 048
     Dates: start: 20130913
  5. FURSULTIAMINE [Concomitant]
     Indication: SUPPLEMENTATION THERAPY
     Dosage: UNK
     Route: 048
     Dates: start: 20130913
  6. TOCOPHEROL [Concomitant]
     Indication: SUPPLEMENTATION THERAPY
     Dosage: UNK
     Route: 048
     Dates: start: 20130913
  7. L CARTIN [Concomitant]
     Indication: SUPPLEMENTATION THERAPY
     Dosage: UNK
     Route: 048
     Dates: start: 20130913
  8. UBIDECARENONE OHARA [Concomitant]
     Indication: SUPPLEMENTATION THERAPY
     Dosage: UNK
     Route: 048
     Dates: start: 20130913
  9. OMEPRAZOLE [Concomitant]
     Indication: GASTRITIS PROPHYLAXIS
     Dosage: UNK
     Route: 048
     Dates: start: 20130913
  10. CARPRONIUM CHLORIDE [Concomitant]
     Indication: ALOPECIA
     Dosage: UNK
     Route: 062
     Dates: start: 20131023
  11. LATANOPROST [Concomitant]
     Indication: PROPHYLAXIS
     Dosage: UNK
     Route: 047
     Dates: start: 20131207
  12. OLOPATADINE HYDROCHLORIDE [Concomitant]
     Indication: RHINITIS ALLERGIC
     Dosage: UNK
     Route: 048
     Dates: start: 20140224
  13. OLOPATADINE HYDROCHLORIDE [Concomitant]
     Indication: RHINITIS ALLERGIC
     Dosage: UNK
     Route: 050
     Dates: start: 20140301

REACTIONS (1)
  - Vitreous opacities [Unknown]
